FAERS Safety Report 9706057 (Version 1)
Quarter: 2013Q4

REPORT INFORMATION
  Report Type: Spontaneous
  Country: US (occurrence: US)
  Receive Date: 20131123
  Receipt Date: 20131123
  Transmission Date: 20140711
  Serious: Yes (Other)
  Sender: FDA-Public Use
  Company Number: US-JNJFOC-20131110336

PATIENT
  Age: 96 Year
  Sex: Female

DRUGS (1)
  1. MYLANTA LIQUID UNSPECIFIED [Suspect]
     Indication: DYSPEPSIA
     Route: 048
     Dates: start: 20131111, end: 20131115

REACTIONS (1)
  - Faeces discoloured [Not Recovered/Not Resolved]
